FAERS Safety Report 8071597-8 (Version None)
Quarter: 2012Q1

REPORT INFORMATION
  Report Type: 
  Country: None (occurrence: None)
  Receive Date: 20120125
  Receipt Date: 20120119
  Transmission Date: 20120608
  Serious: Yes (Death, Hospitalization, Other)
  Sender: FDA-Public Use
  Company Number: FR-PFIZER INC-2011209244

PATIENT
  Age: 82 Year
  Sex: Male

DRUGS (6)
  1. RAMIPRIL [Suspect]
     Dosage: 2.5 MG, 1X/DAY
     Route: 048
  2. BISOPROLOL FUMARATE [Concomitant]
     Dosage: 10 MG, 1X/DAY
     Route: 048
  3. CRESTOR [Concomitant]
     Dosage: 5 MG, 1X/DAY
     Route: 048
  4. FUROSEMIDE [Concomitant]
     Dosage: 250 MG, 1X/DAY
     Route: 048
  5. CORDARONE [Concomitant]
     Dosage: 100 MG, 1X/DAY
     Route: 048
  6. PREVISCAN [Concomitant]
     Dosage: 5 MG, 1X/DAY
     Route: 048

REACTIONS (3)
  - HEPATIC FAILURE [None]
  - CARDIAC FAILURE [None]
  - CHOLESTASIS [None]
